FAERS Safety Report 6719316-9 (Version None)
Quarter: 2010Q2

REPORT INFORMATION
  Report Type: 
  Country: None (occurrence: None)
  Receive Date: 20100511
  Receipt Date: 20100503
  Transmission Date: 20101027
  Serious: Yes (Hospitalization)
  Sender: FDA-Public Use
  Company Number: US-JNJFOC-20100501201

PATIENT
  Sex: Female
  Weight: 48 kg

DRUGS (3)
  1. INFLIXIMAB [Suspect]
     Indication: INFLAMMATORY BOWEL DISEASE
     Route: 042
  2. METHOTREXATE [Concomitant]
  3. PREDNISOLONE [Concomitant]

REACTIONS (3)
  - CONDITION AGGRAVATED [None]
  - DIARRHOEA HAEMORRHAGIC [None]
  - PAIN [None]
